FAERS Safety Report 9350952 (Version 4)
Quarter: 2017Q1

REPORT INFORMATION
  Report Type: Report from Study
  Country: CA (occurrence: CA)
  Receive Date: 20130617
  Receipt Date: 20170322
  Transmission Date: 20170429
  Serious: Yes (Hospitalization)
  Sender: FDA-Public Use
  Company Number: CA-JNJFOC-20130604340

PATIENT
  Age: 68 Year
  Sex: Female
  Weight: 49 kg

DRUGS (9)
  1. FOSAMAX [Concomitant]
     Active Substance: ALENDRONATE SODIUM
     Route: 065
  2. REMICADE [Suspect]
     Active Substance: INFLIXIMAB
     Indication: CROHN^S DISEASE
     Route: 042
     Dates: start: 20040602
  3. CALCIUM [Concomitant]
     Active Substance: CALCIUM
     Route: 065
  4. VITAMIN D [Concomitant]
     Active Substance: CHOLECALCIFEROL
     Route: 065
  5. SULPHASALAZINE [Concomitant]
     Active Substance: SULFASALAZINE
     Route: 065
  6. FERROMAX [Concomitant]
     Route: 065
  7. REMICADE [Suspect]
     Active Substance: INFLIXIMAB
     Indication: RHEUMATOID ARTHRITIS
     Route: 042
     Dates: start: 20040602
  8. ZOCOR [Concomitant]
     Active Substance: SIMVASTATIN
     Route: 065
  9. ALTACE [Concomitant]
     Active Substance: RAMIPRIL
     Route: 065

REACTIONS (4)
  - Femur fracture [Not Recovered/Not Resolved]
  - Knee arthroplasty [Unknown]
  - Fall [Not Recovered/Not Resolved]
  - Lower limb fracture [Not Recovered/Not Resolved]

NARRATIVE: CASE EVENT DATE: 201305
